FAERS Safety Report 16736552 (Version 2)
Quarter: 2020Q2

REPORT INFORMATION
  Report Type: Report from Study
  Country: FI (occurrence: FI)
  Receive Date: 20190823
  Receipt Date: 20200520
  Transmission Date: 20200713
  Serious: Yes (Death)
  Sender: FDA-Public Use
  Company Number: FI-PFIZER INC-2019360001

PATIENT

DRUGS (18)
  1. ETOPOSIDE. [Suspect]
     Active Substance: ETOPOSIDE
     Indication: DIFFUSE LARGE B-CELL LYMPHOMA
     Dosage: UNK, (CYCLIC,FOUR COURSES)
  2. VINCRISTINE SULFATE. [Suspect]
     Active Substance: VINCRISTINE SULFATE
     Dosage: UNK, (CYCLIC,FOUR COURSES)
  3. RITUXIMAB. [Suspect]
     Active Substance: RITUXIMAB
     Dosage: BIWEEKLY
  4. CYCLOPHOSPHAMIDE. [Suspect]
     Active Substance: CYCLOPHOSPHAMIDE
     Indication: DIFFUSE LARGE B-CELL LYMPHOMA
     Dosage: UNK, BIWEEKLY
  5. DEXAMETHASONE. [Suspect]
     Active Substance: DEXAMETHASONE
     Indication: DIFFUSE LARGE B-CELL LYMPHOMA
     Dosage: PREPHASE
  6. VINCRISTINE SULFATE. [Suspect]
     Active Substance: VINCRISTINE SULFATE
     Indication: DIFFUSE LARGE B-CELL LYMPHOMA
     Dosage: PREPHASE
  7. VINCRISTINE SULFATE. [Suspect]
     Active Substance: VINCRISTINE SULFATE
     Dosage: UNK, BIWEEKLY
  8. DOXORUBICIN [Suspect]
     Active Substance: DOXORUBICIN
     Indication: DIFFUSE LARGE B-CELL LYMPHOMA
     Dosage: UNK, BIWEEKLY
  9. RITUXIMAB. [Suspect]
     Active Substance: RITUXIMAB
     Indication: DIFFUSE LARGE B-CELL LYMPHOMA
     Dosage: PREPHASE
  10. CYCLOPHOSPHAMIDE. [Suspect]
     Active Substance: CYCLOPHOSPHAMIDE
     Dosage: UNK, (CYCLIC,FOUR COURSES)
  11. PREDNISONE. [Suspect]
     Active Substance: PREDNISONE
     Dosage: UNK, (CYCLIC,FOUR COURSES)
  12. RITUXIMAB. [Suspect]
     Active Substance: RITUXIMAB
     Dosage: UNK, CYCLIC (1 COURSE OF HIGH-DOSE CYTARABINE WITH R)
  13. PREDNISONE. [Suspect]
     Active Substance: PREDNISONE
     Indication: DIFFUSE LARGE B-CELL LYMPHOMA
     Dosage: UNK, BIWEEKLY
  14. CYTARABINE. [Suspect]
     Active Substance: CYTARABINE
     Indication: DIFFUSE LARGE B-CELL LYMPHOMA
     Dosage: ONE COURSE,HIGH DOSE 12 G/M2
  15. RITUXIMAB. [Suspect]
     Active Substance: RITUXIMAB
     Dosage: UNK, CYCLIC, 4 COURSES
  16. DOXORUBICIN [Suspect]
     Active Substance: DOXORUBICIN
     Dosage: UNK, (CYCLIC,FOUR COURSES)
  17. METHOTREXATE SODIUM. [Suspect]
     Active Substance: METHOTREXATE SODIUM
     Indication: DIFFUSE LARGE B-CELL LYMPHOMA
     Dosage: UNK, CYCLIC (HIGH DOSE, TWO COURSES)
  18. CYTARABINE. [Suspect]
     Active Substance: CYTARABINE
     Indication: DIFFUSE LARGE B-CELL LYMPHOMA
     Dosage: LIPOSOMAL, CYCLIC (AT COURSES 1, 3 AND 5)
     Route: 037

REACTIONS (1)
  - Multiple organ dysfunction syndrome [Fatal]
